FAERS Safety Report 10920799 (Version 1)
Quarter: 2015Q1

REPORT INFORMATION
  Report Type: Spontaneous
  Country: US (occurrence: US)
  Receive Date: 20150317
  Receipt Date: 20150317
  Transmission Date: 20150721
  Serious: Yes (Hospitalization)
  Sender: FDA-Public Use
  Company Number: US-JNJFOC-20150302746

PATIENT
  Age: 79 Year
  Sex: Female
  Weight: 56.7 kg

DRUGS (2)
  1. OLYSIO [Suspect]
     Active Substance: SIMEPREVIR
     Indication: HEPATITIS C
     Route: 048
     Dates: end: 20150206
  2. SOFOSBUVIR [Concomitant]
     Active Substance: SOFOSBUVIR
     Route: 065

REACTIONS (6)
  - Condition aggravated [Unknown]
  - Lip exfoliation [Unknown]
  - Hospitalisation [Not Recovered/Not Resolved]
  - Photosensitivity reaction [Unknown]
  - Rash [Unknown]
  - Cheilitis [Unknown]

NARRATIVE: CASE EVENT DATE: 20150206
